FAERS Safety Report 5674182-8 (Version None)
Quarter: 2008Q1

REPORT INFORMATION
  Report Type: 
  Country: None (occurrence: None)
  Receive Date: 20080320
  Receipt Date: 20080311
  Transmission Date: 20080703
  Serious: Yes (Hospitalization)
  Sender: FDA-Public Use
  Company Number: PHFR2008GB00890

PATIENT
  Age: 29 Year
  Sex: Female

DRUGS (6)
  1. CITALOPRAM HYDROBROMIDE [Suspect]
     Dosage: 40 MG, ONCE/SINGLE
     Route: 048
     Dates: start: 20080211, end: 20080211
  2. CITALOPRAM HYDROBROMIDE [Suspect]
     Dosage: 20MG/DAY
     Route: 048
  3. DIAZEPAM [Suspect]
     Dosage: 8 MG, ONCE/SINGLE
     Route: 048
     Dates: start: 20080211, end: 20080211
  4. DIAZEPAM [Suspect]
     Dosage: 2MG / DAY
     Route: 048
  5. CLOZARIL [Suspect]
     Indication: SCHIZOPHRENIA
     Dosage: 1800 MG, ONCE/SINGLE
     Route: 048
     Dates: start: 20080211, end: 20080211
  6. CLOZARIL [Suspect]
     Dosage: 450MG / DAY
     Route: 048
     Dates: start: 20060816

REACTIONS (1)
  - MULTIPLE DRUG OVERDOSE [None]
